FAERS Safety Report 9206859 (Version 1)
Quarter: 2013Q2

REPORT INFORMATION
  Report Type: Spontaneous
  Country: IT (occurrence: IT)
  Receive Date: 20130403
  Receipt Date: 20130403
  Transmission Date: 20140414
  Serious: Yes (Hospitalization, Other)
  Sender: FDA-Public Use
  Company Number: IT-ELI_LILLY_AND_COMPANY-IT201303008796

PATIENT
  Age: 50 Year
  Sex: Female

DRUGS (4)
  1. XERISTAR [Suspect]
     Dosage: 4800 MG, SINGLE
     Dates: start: 20130308, end: 20130308
  2. ALPROZOLAM [Concomitant]
     Dosage: UNK, SINGLE
     Dates: start: 20130308, end: 20130308
  3. LYRICA [Concomitant]
     Dosage: 1050 MG, SINGLE
     Dates: start: 20130308, end: 20130308
  4. SIRDALUD [Concomitant]
     Dosage: 16 MG, SINGLE
     Dates: start: 20130308, end: 20130308

REACTIONS (6)
  - Drug abuse [Recovered/Resolved]
  - Sopor [Recovered/Resolved]
  - Intentional overdose [Recovered/Resolved]
  - Fall [Unknown]
  - Excoriation [Unknown]
  - Major depression [Unknown]
